FAERS Safety Report 8583200-9 (Version None)
Quarter: 2012Q3

REPORT INFORMATION
  Report Type: 
  Country: None (occurrence: None)
  Receive Date: 20120727
  Receipt Date: 20120220
  Transmission Date: 20120928
  Serious: Yes (Hospitalization)
  Sender: FDA-Public Use
  Company Number: EU-2011-10302

PATIENT
  Sex: Male
  Weight: 160 kg

DRUGS (12)
  1. SAMSCA [Suspect]
     Indication: INAPPROPRIATE ANTIDIURETIC HORMONE SECRETION
     Dosage: SEE IMAGE
     Route: 048
     Dates: start: 20120104, end: 20120125
  2. SAMSCA [Suspect]
     Indication: INAPPROPRIATE ANTIDIURETIC HORMONE SECRETION
     Dosage: SEE IMAGE
     Route: 048
     Dates: start: 20110708, end: 20111014
  3. SAMSCA [Suspect]
     Indication: INAPPROPRIATE ANTIDIURETIC HORMONE SECRETION
     Dosage: SEE IMAGE
     Route: 048
     Dates: start: 20111025, end: 20111025
  4. SAMSCA [Suspect]
     Indication: INAPPROPRIATE ANTIDIURETIC HORMONE SECRETION
     Dosage: SEE IMAGE
     Route: 048
     Dates: start: 20120125
  5. SAMSCA [Suspect]
     Indication: INAPPROPRIATE ANTIDIURETIC HORMONE SECRETION
     Dosage: SEE IMAGE
     Route: 048
     Dates: start: 20111028, end: 20111130
  6. SAMSCA [Suspect]
     Indication: INAPPROPRIATE ANTIDIURETIC HORMONE SECRETION
     Dosage: SEE IMAGE
     Route: 048
     Dates: start: 20111130, end: 20120104
  7. AMLODIPINE [Suspect]
     Indication: HYPERTENSION
     Dosage: 5 MG MILLIGRAM(S), DAILY DOSE, ORAL
     Route: 048
     Dates: start: 20110808
  8. ASPIRIN [Concomitant]
  9. FUROSEMIDE [Concomitant]
  10. DOXAZOSIN MESYLATE [Concomitant]
  11. ACETAMINOPHEN [Concomitant]
  12. HIDROFEROL (CALCIFEDIOL) [Concomitant]

REACTIONS (5)
  - INCORRECT DRUG ADMINISTRATION RATE [None]
  - OEDEMA PERIPHERAL [None]
  - ECZEMA [None]
  - HEADACHE [None]
  - WRONG TECHNIQUE IN DRUG USAGE PROCESS [None]
